FAERS Safety Report 7864360-1 (Version None)
Quarter: 2011Q4

REPORT INFORMATION
  Report Type: 
  Country: None (occurrence: None)
  Receive Date: 20111028
  Receipt Date: 20111020
  Transmission Date: 20120403
  Serious: Yes (Hospitalization)
  Sender: FDA-Public Use
  Company Number: US-ASTELLAS-2011US005575

PATIENT
  Sex: Male

DRUGS (4)
  1. FLOVENT [Concomitant]
     Indication: ASTHMA
     Dosage: 110 UG, PRN
     Route: 055
     Dates: start: 20080101
  2. TACROLIMUS [Suspect]
     Indication: DERMATITIS ATOPIC
     Dosage: 0.1 %, UID/QD
     Route: 061
     Dates: start: 20070806
  3. TRIAMCINOLONE [Concomitant]
     Indication: ECZEMA
     Dosage: 0.1 %, PRN
     Route: 061
     Dates: start: 20090409
  4. VENTOLIN [Concomitant]
     Indication: ASTHMA
     Dosage: UNK
     Route: 055
     Dates: start: 20080101

REACTIONS (2)
  - CROHN'S DISEASE [None]
  - OFF LABEL USE [None]
